FAERS Safety Report 23998114 (Version 2)
Quarter: 2024Q2

REPORT INFORMATION
  Report Type: Report from Study
  Country: US (occurrence: US)
  Receive Date: 20240621
  Receipt Date: 20240622
  Transmission Date: 20240716
  Serious: Yes (Other)
  Sender: FDA-Public Use
  Company Number: US-UCBSA-2024019682

PATIENT
  Age: 31 Year
  Sex: Male

DRUGS (2)
  1. LACOSAMIDE [Suspect]
     Active Substance: LACOSAMIDE
     Indication: Seizure
     Dosage: 100MG 2.5 TABLETS, TWICE DAILY (6-8 YEARS AGO APPROXIAMATELY)
     Route: 048
  2. KEPPRA [Suspect]
     Active Substance: LEVETIRACETAM
     Indication: Seizure
     Dosage: 500 MILLIGRAM, 2X/DAY (BID), 6-8 YEARS AGO APPROX
     Route: 048

REACTIONS (6)
  - Seizure [Recovered/Resolved]
  - Stress [Recovered/Resolved]
  - Therapy interrupted [Unknown]
  - Product availability issue [Unknown]
  - Wrong technique in product usage process [Unknown]
  - Overdose [Unknown]

NARRATIVE: CASE EVENT DATE: 20240401
